FAERS Safety Report 24171058 (Version 1)
Quarter: 2024Q3

REPORT INFORMATION
  Report Type: Report from Study
  Country: FR (occurrence: FR)
  Receive Date: 20240805
  Receipt Date: 20240805
  Transmission Date: 20241016
  Serious: Yes (Disabling)
  Sender: AMGEN
  Company Number: FR-SEATTLE GENETICS-2021SGN02126

PATIENT
  Age: 67 Year
  Sex: Female
  Weight: 50 kg

DRUGS (11)
  1. TRASTUZUMAB [Suspect]
     Active Substance: TRASTUZUMAB
     Indication: HER2 positive breast cancer
     Dosage: 600 MG, EVERY 3 WEEKS
     Route: 058
  2. TRASTUZUMAB [Suspect]
     Active Substance: TRASTUZUMAB
     Dosage: 2000 MILLIGRAM
     Route: 058
  3. TUCATINIB [Suspect]
     Active Substance: TUCATINIB
     Indication: HER2 positive breast cancer
     Dosage: 300 MG, BID WITH A 21-DAY TREATMENT CYCLE
     Route: 048
     Dates: start: 20201121
  4. TUCATINIB [Suspect]
     Active Substance: TUCATINIB
     Dosage: 500 MILLIGRAM, QD (250 MG, 2X/DAY)
     Route: 048
     Dates: start: 20201208
  5. TUCATINIB [Suspect]
     Active Substance: TUCATINIB
     Dosage: 400 MILLIGRAM, QD (200 MG, 2X/DAY)
     Route: 048
     Dates: start: 20210107
  6. CAPECITABINE [Suspect]
     Active Substance: CAPECITABINE
     Indication: HER2 positive breast cancer
     Dosage: 1000 MG/M2, BID DAYS 1 TO 14 OF A 21-DAY CYCLE
     Route: 048
  7. CAPECITABINE [Suspect]
     Active Substance: CAPECITABINE
     Dosage: 600 MILLIGRAM
     Route: 048
  8. PAROXETINE HYDROCHLORIDE [Concomitant]
     Active Substance: PAROXETINE HYDROCHLORIDE\PAROXETINE HYDROCHLORIDE ANHYDROUS
     Dosage: UNK
  9. Calcit [Concomitant]
     Dosage: UNK
  10. TOVIAZ [Concomitant]
     Active Substance: FESOTERODINE FUMARATE
     Dosage: UNK
  11. OMEPRAZOLE [Concomitant]
     Active Substance: OMEPRAZOLE
     Dosage: UNK

REACTIONS (2)
  - Vertigo [Not Recovered/Not Resolved]
  - Asthenia [Not Recovered/Not Resolved]

NARRATIVE: CASE EVENT DATE: 20201202
